FAERS Safety Report 8590877-0 (Version None)
Quarter: 2012Q3

REPORT INFORMATION
  Report Type: 
  Country: None (occurrence: None)
  Receive Date: 20120813
  Receipt Date: 20120731
  Transmission Date: 20120928
  Serious: Yes (Other)
  Sender: FDA-Public Use
  Company Number: ES-FRI-1000031433

PATIENT
  Sex: Male

DRUGS (10)
  1. ACETAMINOPHEN [Concomitant]
  2. METFORMIN HYDROCHLORIDE [Concomitant]
  3. FLUTICASONE/SAMLETEROL [Concomitant]
  4. ATORVASTATIN CALCIUM [Concomitant]
  5. AMLODIPINE [Concomitant]
  6. TAMSULOSIN HCL [Concomitant]
  7. TIOTROPIUM [Concomitant]
  8. OMEPRAZOLE [Concomitant]
  9. ROFLUMILAST [Suspect]
     Indication: CHRONIC OBSTRUCTIVE PULMONARY DISEASE
     Dosage: 0.5 DF
     Dates: start: 20120401, end: 20120101
  10. IRBESARTAN [Concomitant]

REACTIONS (1)
  - MYOPATHY [None]
